FAERS Safety Report 7399375-3 (Version None)
Quarter: 2011Q1

REPORT INFORMATION
  Report Type: 
  Country: None (occurrence: None)
  Receive Date: 20110329
  Receipt Date: 20110317
  Transmission Date: 20110831
  Serious: Yes (Other)
  Sender: FDA-Public Use
  Company Number: 2011SP012333

PATIENT
  Age: 48 Year
  Sex: Female
  Weight: 74 kg

DRUGS (1)
  1. CERAZETTE (DESOGESTREL /00754001/) [Suspect]
     Indication: AMENORRHOEA
     Dosage: PO
     Route: 048
     Dates: start: 20110209

REACTIONS (3)
  - DEPRESSION [None]
  - SUICIDAL IDEATION [None]
  - CHEST PAIN [None]
